FAERS Safety Report 5488160-5 (Version None)
Quarter: 2007Q4

REPORT INFORMATION
  Report Type: 
  Country: None (occurrence: None)
  Receive Date: 20071001
  Receipt Date: 20070418
  Transmission Date: 20080405
  Serious: Yes (Other)
  Sender: FDA-Public Use
  Company Number: 2007040038

PATIENT
  Age: 10 Year
  Sex: Male

DRUGS (4)
  1. FELBATOL [Suspect]
     Indication: LENNOX-GASTAUT SYNDROME
     Dates: start: 19961001
  2. DEPAKOTE [Suspect]
     Indication: LENNOX-GASTAUT SYNDROME
  3. KEPPRA [Concomitant]
  4. KLONOPIN [Concomitant]

REACTIONS (3)
  - NEUTROPHIL COUNT DECREASED [None]
  - RETICULOCYTE COUNT DECREASED [None]
  - WHITE BLOOD CELL COUNT DECREASED [None]
